FAERS Safety Report 4804410-X (Version None)
Quarter: 2005Q4

REPORT INFORMATION
  Report Type: 
  Country: None (occurrence: None)
  Receive Date: 20051020
  Receipt Date: 20051018
  Transmission Date: 20060501
  Serious: Yes (Other)
  Sender: FDA-Public Use
  Company Number: US-GLAXOSMITHKLINE-A0578623A

PATIENT
  Age: 27 Year
  Sex: Male

DRUGS (2)
  1. VALTREX [Suspect]
     Dosage: 500MG PER DAY
     Route: 048
  2. FLOMAX [Concomitant]

REACTIONS (3)
  - CONSTIPATION [None]
  - HEPATIC ENZYME INCREASED [None]
  - PROSTATE EXAMINATION ABNORMAL [None]
